FAERS Safety Report 5502567-9 (Version None)
Quarter: 2007Q4

REPORT INFORMATION
  Report Type: 
  Country: None (occurrence: None)
  Receive Date: 20071031
  Receipt Date: 20071022
  Transmission Date: 20080405
  Serious: Yes (Other)
  Sender: FDA-Public Use
  Company Number: PHBS2007CN17664

PATIENT
  Age: 30 Year
  Sex: Female

DRUGS (1)
  1. SEBIVO [Suspect]
     Indication: HEPATITIS B
     Route: 048

REACTIONS (3)
  - HYPOAESTHESIA [None]
  - LIMB DISCOMFORT [None]
  - NEUROPATHY PERIPHERAL [None]
